FAERS Safety Report 21708021 (Version 1)
Quarter: 2022Q4

REPORT INFORMATION
  Report Type: Spontaneous
  Country: US (occurrence: US)
  Receive Date: 20221209
  Receipt Date: 20221209
  Transmission Date: 20230112
  Serious: Yes (Hospitalization)
  Sender: FDA-Public Use
  Company Number: US-009507513-2212USA000579

PATIENT
  Age: 74 Year
  Sex: Female

DRUGS (2)
  1. KEYTRUDA [Suspect]
     Active Substance: PEMBROLIZUMAB
     Indication: Triple negative breast cancer
  2. LADIRATUZUMAB VEDOTIN [Suspect]
     Active Substance: LADIRATUZUMAB VEDOTIN
     Indication: Triple negative breast cancer

REACTIONS (2)
  - Lumbosacral plexopathy [Recovering/Resolving]
  - Product use issue [Unknown]
